FAERS Safety Report 26045569 (Version 1)
Quarter: 2025Q4

REPORT INFORMATION
  Report Type: Spontaneous
  Country: EU (occurrence: EU)
  Receive Date: 20251114
  Receipt Date: 20251114
  Transmission Date: 20260118
  Serious: Yes (Other)
  Sender: AUROBINDO
  Company Number: EU-MINISAL02-1062864

PATIENT
  Age: 69 Year
  Sex: Male
  Weight: 83 kg

DRUGS (2)
  1. DOCETAXEL [Suspect]
     Active Substance: DOCETAXEL
     Indication: Product used for unknown indication
     Dosage: DOCETAXEL 75 MG/MQ OGNI 21 GIORNI
     Route: 042
     Dates: start: 20250717
  2. NUBEQA [Suspect]
     Active Substance: DAROLUTAMIDE
     Indication: Prostate cancer
     Dosage: 01/07/25 - 12/09/25 NUBEQA 300 MG CP, 2 CP PER DUE VOLTE AL GIORNO (1200 MG TOTALI) TUTTI I GIORNI
     Route: 048
     Dates: start: 20250701

REACTIONS (1)
  - Transaminases increased [Recovered/Resolved]

NARRATIVE: CASE EVENT DATE: 20250912
